FAERS Safety Report 7349957-X (Version None)
Quarter: 2011Q1

REPORT INFORMATION
  Report Type: 
  Country: None (occurrence: None)
  Receive Date: 20110314
  Receipt Date: 20110308
  Transmission Date: 20110831
  Serious: Yes (Death)
  Sender: FDA-Public Use
  Company Number: GB-ROCHE-764229

PATIENT
  Sex: Female
  Weight: 156 kg

DRUGS (6)
  1. IPRATROPIUM BROMIDE [Concomitant]
     Dosage: NEBULISER
     Dates: start: 20110120, end: 20110129
  2. OSELTAMIVIR [Suspect]
     Indication: INFLUENZA
     Route: 042
     Dates: start: 20110125, end: 20110129
  3. PARACETAMOL [Concomitant]
     Dates: start: 20110120, end: 20110129
  4. OSELTAMIVIR [Suspect]
     Route: 050
     Dates: start: 20110120, end: 20110125
  5. TAZOCIN [Concomitant]
     Route: 042
     Dates: start: 20110120, end: 20110129
  6. SALBUTAMOL [Concomitant]
     Dosage: NEBULISER
     Dates: start: 20110120, end: 20110129

REACTIONS (1)
  - MULTI-ORGAN FAILURE [None]
